FAERS Safety Report 7327653-2 (Version None)
Quarter: 2011Q1

REPORT INFORMATION
  Report Type: 
  Country: None (occurrence: None)
  Receive Date: 20110303
  Receipt Date: 20110207
  Transmission Date: 20110831
  Serious: Yes (Other)
  Sender: FDA-Public Use
  Company Number: US-BAYER-201032785NA

PATIENT
  Sex: Female
  Weight: 54 kg

DRUGS (6)
  1. NAPROXEN SODIUM [Concomitant]
     Dates: start: 20070101
  2. YAZ [Suspect]
     Indication: CONTRACEPTION
     Route: 048
     Dates: start: 20070601, end: 20080601
  3. ADVIL LIQUI-GELS [Concomitant]
     Indication: PAIN
     Dosage: 2 TABLETS EVERY 6 HOURS
     Dates: start: 20081201
  4. UNCODEABLE ^UNCLASSIFIABLE^ [Concomitant]
     Dosage: 2 TABLETS EVERY 6 HOURS
     Dates: start: 20081201
  5. NEXIUM [Concomitant]
  6. PREVACID [Concomitant]

REACTIONS (5)
  - GALLBLADDER CHOLESTEROLOSIS [None]
  - CHOLECYSTITIS CHRONIC [None]
  - ABDOMINAL PAIN [None]
  - BILIARY DYSKINESIA [None]
  - NAUSEA [None]
